FAERS Safety Report 5910942-3 (Version None)
Quarter: 2008Q4

REPORT INFORMATION
  Report Type: 
  Country: None (occurrence: None)
  Receive Date: 20081007
  Receipt Date: 20080716
  Transmission Date: 20090506
  Serious: No
  Sender: FDA-Public Use
  Company Number: US-ASTRAZENECA-2008UW14221

PATIENT
  Age: 79 Year
  Sex: Female
  Weight: 63.5 kg

DRUGS (4)
  1. ARIMIDEX [Suspect]
     Indication: BREAST CANCER
     Route: 048
     Dates: start: 20060101
  2. NEXIUM [Concomitant]
     Route: 048
  3. TEMAZEPAM [Concomitant]
     Dosage: HS PRN
  4. TRAVIAN [Concomitant]
     Indication: GLAUCOMA
     Dosage: 2.5 EYE DROPS

REACTIONS (1)
  - BLOOD PRESSURE INCREASED [None]
